FAERS Safety Report 5045615-5 (Version None)
Quarter: 2006Q3

REPORT INFORMATION
  Report Type: 
  Country: None (occurrence: None)
  Receive Date: 20060707
  Receipt Date: 20060327
  Transmission Date: 20061208
  Serious: Yes (Other)
  Sender: FDA-Public Use
  Company Number: JP-ABBOTT-06P-087-0329098-00

PATIENT
  Sex: Male
  Weight: 75 kg

DRUGS (11)
  1. SEVOFRANE LIQUID FOR INHALATION [Suspect]
     Indication: INDUCTION OF ANAESTHESIA
     Route: 055
     Dates: start: 20060221, end: 20060221
  2. SEVOFRANE LIQUID FOR INHALATION [Suspect]
     Indication: GENERAL ANAESTHESIA
     Route: 055
     Dates: start: 20060307, end: 20060307
  3. PROPOFOL [Suspect]
     Indication: INDUCTION OF ANAESTHESIA
     Dates: start: 20060307, end: 20060307
  4. PROPOFOL [Suspect]
     Indication: MAINTENANCE OF ANAESTHESIA
     Dates: start: 20060307, end: 20060307
  5. SUXAMETHONIUM CHLORIDE [Suspect]
     Indication: INDUCTION OF ANAESTHESIA
     Dates: start: 20060221, end: 20060221
  6. SUXAMETHONIUM CHLORIDE [Suspect]
     Route: 042
     Dates: start: 20060307, end: 20060307
  7. NITROUS OXIDE W/ OXYGEN [Concomitant]
     Indication: INDUCTION OF ANAESTHESIA
     Dates: start: 20060221, end: 20060221
  8. NITROUS OXIDE W/ OXYGEN [Concomitant]
     Indication: MAINTENANCE OF ANAESTHESIA
     Route: 055
     Dates: start: 20060307, end: 20060307
  9. ATROPINE SULFATE [Concomitant]
     Indication: ANAESTHETIC PREMEDICATION
     Route: 030
     Dates: start: 20060307, end: 20060307
  10. THALAMONAL [Concomitant]
     Indication: INDUCTION OF ANAESTHESIA
     Dates: start: 20060221, end: 20060221
  11. THIAMYLAL SODIUM [Concomitant]
     Indication: INDUCTION OF ANAESTHESIA
     Dates: start: 20060221, end: 20060221

REACTIONS (2)
  - ANAPHYLACTIC SHOCK [None]
  - HYPOTENSION [None]
